FAERS Safety Report 24545331 (Version 2)
Quarter: 2025Q2

REPORT INFORMATION
  Report Type: Spontaneous
  Country: FR (occurrence: FR)
  Receive Date: 20241024
  Receipt Date: 20250630
  Transmission Date: 20250717
  Serious: Yes (Other)
  Sender: AMGEN
  Company Number: None

PATIENT
  Age: 2 Year
  Sex: Female
  Weight: 15.3 kg

DRUGS (3)
  1. BEVACIZUMAB [Suspect]
     Active Substance: BEVACIZUMAB
     Indication: Laryngeal papilloma
     Dosage: 10 MILLIGRAM/KILOGRAM, QMO
     Route: 040
     Dates: start: 20221103, end: 20230207
  2. BEVACIZUMAB [Suspect]
     Active Substance: BEVACIZUMAB
     Dosage: 10 MILLIGRAM/KILOGRAM, Q6WK
     Route: 040
     Dates: start: 20230207, end: 20230613
  3. BEVACIZUMAB [Suspect]
     Active Substance: BEVACIZUMAB
     Dosage: 10 MILLIGRAM/KILOGRAM, Q8WK
     Route: 040
     Dates: start: 20230613

REACTIONS (3)
  - Peripheral ischaemia [Not Recovered/Not Resolved]
  - Capillary disorder [Not Recovered/Not Resolved]
  - Off label use [Unknown]

NARRATIVE: CASE EVENT DATE: 20221103
